FAERS Safety Report 7903201-0 (Version None)
Quarter: 2011Q4

REPORT INFORMATION
  Report Type: 
  Country: None (occurrence: None)
  Receive Date: 20111109
  Receipt Date: 20111107
  Transmission Date: 20120403
  Serious: No
  Sender: FDA-Public Use
  Company Number: US-TEVA-308100USA

PATIENT
  Sex: Female

DRUGS (1)
  1. COPAXONE [Suspect]
     Indication: MULTIPLE SCLEROSIS
     Route: 058

REACTIONS (5)
  - THYROID CYST [None]
  - RASH [None]
  - AUTOIMMUNE THYROIDITIS [None]
  - HYPOTHYROIDISM [None]
  - HYPERSENSITIVITY [None]
